FAERS Safety Report 23555028 (Version 1)
Quarter: 2024Q1

REPORT INFORMATION
  Report Type: Spontaneous
  Country: NL (occurrence: NL)
  Receive Date: 20240222
  Receipt Date: 20240222
  Transmission Date: 20240410
  Serious: Yes (Life-Threatening, Hospitalization)
  Sender: FDA-Public Use
  Company Number: None

PATIENT
  Age: 66 Year
  Sex: Female
  Weight: 58 kg

DRUGS (1)
  1. AMOXICILLIN [Suspect]
     Active Substance: AMOXICILLIN
     Indication: Chronic obstructive pulmonary disease
     Dosage: 3 PIECES ONCE A DAY
     Route: 065
     Dates: start: 20231002, end: 20231020

REACTIONS (3)
  - Erythema [Unknown]
  - Dyspnoea [Unknown]
  - Hypersensitivity [Unknown]
